FAERS Safety Report 22245757 (Version 1)
Quarter: 2023Q2

REPORT INFORMATION
  Report Type: Spontaneous
  Country: DK (occurrence: DK)
  Receive Date: 20230424
  Receipt Date: 20230424
  Transmission Date: 20230722
  Serious: Yes (Other)
  Sender: FDA-Public Use
  Company Number: DK-GRUNENTHAL-2023-102749

PATIENT
  Age: 4 Decade
  Sex: Male

DRUGS (2)
  1. TRAMADOL [Interacting]
     Active Substance: TRAMADOL
     Indication: Procedural pain
     Dosage: 50 MILLIGRAM, QID (50 MILLIGRAM, 4/DAY)
     Route: 065
  2. SERTRALINE [Interacting]
     Active Substance: SERTRALINE HYDROCHLORIDE
     Indication: Depression
     Dosage: 150 MILLIGRAM, QD (150 MILLIGRAM, 1/DAY)
     Route: 065

REACTIONS (4)
  - General physical health deterioration [Unknown]
  - Hypophagia [Unknown]
  - Serotonin syndrome [Unknown]
  - Drug interaction [Unknown]
